FAERS Safety Report 9089754 (Version 1)
Quarter: 2013Q1

REPORT INFORMATION
  Report Type: Report from Study
  Country: US (occurrence: US)
  Receive Date: 20130201
  Receipt Date: 20130201
  Transmission Date: 20140127
  Serious: No
  Sender: FDA-Public Use
  Company Number: US-ABBOTT-12P-163-1029018-00

PATIENT
  Age: 53 Year
  Sex: Female

DRUGS (8)
  1. HUMIRA [Suspect]
     Indication: PSORIASIS
     Route: 058
     Dates: start: 201210
  2. OXCARBAZEPINE [Concomitant]
     Indication: EPILEPSY
  3. DILANTIN [Concomitant]
     Indication: EPILEPSY
  4. TOPAMAX [Concomitant]
     Indication: EPILEPSY
  5. TOPAMAX [Concomitant]
     Indication: MIGRAINE
  6. VIMPAT [Concomitant]
     Indication: EPILEPSY
     Dosage: .5 TABLET IN THE AM, .5 TABLET IN THE PM
  7. LASIX [Concomitant]
     Indication: BLOOD PRESSURE
     Dosage: 40MG DAILY
  8. ATENOLOL [Concomitant]
     Indication: VENTRICULAR TACHYCARDIA
     Dosage: 25MG DAILY

REACTIONS (1)
  - Bronchitis [Recovering/Resolving]
